FAERS Safety Report 5214078-9 (Version None)
Quarter: 2007Q1

REPORT INFORMATION
  Report Type: 
  Country: None (occurrence: None)
  Receive Date: 20070122
  Receipt Date: 20070111
  Transmission Date: 20070707
  Serious: Yes (Hospitalization)
  Sender: FDA-Public Use
  Company Number: NL-AVENTIS-200310914EU

PATIENT
  Sex: Female

DRUGS (3)
  1. RILUZOLE [Suspect]
     Route: 048
     Dates: start: 20010327, end: 20030301
  2. RILUZOLE [Suspect]
     Route: 048
     Dates: start: 20030312, end: 20030312
  3. MERCILON [Concomitant]
     Indication: CONTRACEPTION

REACTIONS (6)
  - ACCIDENTAL OVERDOSE [None]
  - AMNESIA [None]
  - DYSARTHRIA [None]
  - GAIT DISTURBANCE [None]
  - HEADACHE [None]
  - NAUSEA [None]
